FAERS Safety Report 7632909-X (Version None)
Quarter: 2011Q3

REPORT INFORMATION
  Report Type: 
  Country: None (occurrence: None)
  Receive Date: 20110725
  Receipt Date: 20110715
  Transmission Date: 20111222
  Serious: Yes (Hospitalization)
  Sender: FDA-Public Use
  Company Number: JP-ASTRAZENECA-2011SE43297

PATIENT
  Age: 67 Year
  Sex: Male
  Weight: 67 kg

DRUGS (12)
  1. ISODINE GARGLE [Concomitant]
     Dosage: DOSE UNKNOWN
     Route: 002
     Dates: start: 20101201
  2. SYMBICORT [Suspect]
     Indication: CHRONIC OBSTRUCTIVE PULMONARY DISEASE
     Dosage: 160/4.5 UG TWO INHALATION TWO TIMES A DAY
     Route: 055
     Dates: start: 20101019
  3. SEREVENT [Concomitant]
     Indication: CHRONIC OBSTRUCTIVE PULMONARY DISEASE
     Dosage: DOSE UNKNOWN
     Route: 055
     Dates: end: 20101019
  4. ALBUTEROL SULFATE [Concomitant]
     Indication: CHRONIC OBSTRUCTIVE PULMONARY DISEASE
     Dosage: DOSE UNKNOWN, AS REQUIRED
     Route: 055
     Dates: start: 20101001
  5. SPIRIVA [Suspect]
     Indication: CHRONIC OBSTRUCTIVE PULMONARY DISEASE
     Route: 055
     Dates: start: 20060802
  6. PL [Concomitant]
     Dosage: DOSE UNKNOWN
     Route: 048
     Dates: start: 20110111, end: 20110117
  7. PL [Concomitant]
     Dosage: DOSE UNKNOWN
     Route: 048
     Dates: start: 20110215, end: 20110221
  8. ISODINE GARGLE [Concomitant]
     Indication: NASOPHARYNGITIS
     Dosage: DOSE UNKNOWN
     Route: 002
     Dates: start: 20101116, end: 20101130
  9. PL [Concomitant]
     Indication: NASOPHARYNGITIS
     Dosage: DOSE UNKNOWN
     Route: 048
     Dates: start: 20101116, end: 20101123
  10. MUCOSOLVAN [Concomitant]
     Indication: NASOPHARYNGITIS
     Dosage: DOSE UNKNOWN
     Route: 048
     Dates: start: 20110111, end: 20110117
  11. MUCOSOLVAN [Concomitant]
     Dosage: DOSE UNKNOWN
     Route: 048
     Dates: start: 20110215, end: 20110221
  12. BANAN [Concomitant]
     Indication: NASOPHARYNGITIS
     Dosage: DOSE UNKNOWN
     Route: 048
     Dates: start: 20110111, end: 20110117

REACTIONS (1)
  - PNEUMONIA [None]
